FAERS Safety Report 25961984 (Version 1)
Quarter: 2025Q4

REPORT INFORMATION
  Report Type: Spontaneous
  Country: EU (occurrence: EU)
  Receive Date: 20251027
  Receipt Date: 20251027
  Transmission Date: 20260117
  Serious: Yes (Hospitalization)
  Sender: MYLAN
  Company Number: None

PATIENT
  Age: 21 Year
  Sex: Male

DRUGS (12)
  1. PREGABALIN [Suspect]
     Active Substance: PREGABALIN
     Indication: Product used for unknown indication
     Dosage: 900 MILLIGRAM, TOTAL
     Dates: start: 20250126, end: 20250126
  2. PREGABALIN [Suspect]
     Active Substance: PREGABALIN
     Dosage: 900 MILLIGRAM, TOTAL
     Route: 048
     Dates: start: 20250126, end: 20250126
  3. PREGABALIN [Suspect]
     Active Substance: PREGABALIN
     Dosage: 900 MILLIGRAM, TOTAL
     Route: 048
     Dates: start: 20250126, end: 20250126
  4. PREGABALIN [Suspect]
     Active Substance: PREGABALIN
     Dosage: 900 MILLIGRAM, TOTAL
     Dates: start: 20250126, end: 20250126
  5. COCAINE [Suspect]
     Active Substance: COCAINE
     Indication: Product used for unknown indication
     Dosage: 1.5 GRAM, TOTAL
     Dates: start: 20250126, end: 20250126
  6. COCAINE [Suspect]
     Active Substance: COCAINE
     Dosage: 1.5 GRAM, TOTAL
     Route: 045
     Dates: start: 20250126, end: 20250126
  7. COCAINE [Suspect]
     Active Substance: COCAINE
     Dosage: 1.5 GRAM, TOTAL
     Route: 045
     Dates: start: 20250126, end: 20250126
  8. COCAINE [Suspect]
     Active Substance: COCAINE
     Dosage: 1.5 GRAM, TOTAL
     Dates: start: 20250126, end: 20250126
  9. RIVOTRIL [Suspect]
     Active Substance: CLONAZEPAM
     Indication: Product used for unknown indication
     Dosage: 2 MILLIGRAM, TOTAL, QUADRISCORED TABLET
     Dates: start: 20250126, end: 20250126
  10. RIVOTRIL [Suspect]
     Active Substance: CLONAZEPAM
     Dosage: 2 MILLIGRAM, TOTAL, QUADRISCORED TABLET
     Route: 048
     Dates: start: 20250126, end: 20250126
  11. RIVOTRIL [Suspect]
     Active Substance: CLONAZEPAM
     Dosage: 2 MILLIGRAM, TOTAL, QUADRISCORED TABLET
     Route: 048
     Dates: start: 20250126, end: 20250126
  12. RIVOTRIL [Suspect]
     Active Substance: CLONAZEPAM
     Dosage: 2 MILLIGRAM, TOTAL, QUADRISCORED TABLET
     Dates: start: 20250126, end: 20250126

REACTIONS (6)
  - Palpitations [Recovered/Resolved]
  - Chest pain [Recovered/Resolved]
  - Troponin increased [Recovered/Resolved]
  - Substance use disorder [Recovered/Resolved]
  - Drug use disorder [Recovered/Resolved]
  - Dyspnoea [Recovered/Resolved]

NARRATIVE: CASE EVENT DATE: 20250126
